FAERS Safety Report 7164529-8 (Version None)
Quarter: 2010Q4

REPORT INFORMATION
  Report Type: 
  Country: None (occurrence: None)
  Receive Date: 20101123
  Receipt Date: 20100729
  Transmission Date: 20110411
  Serious: No
  Sender: FDA-Public Use
  Company Number: 016527

PATIENT
  Sex: Female
  Weight: 76.2 kg

DRUGS (3)
  1. CIMZIA [Suspect]
     Dosage: (400 MG 1X/MONTH 2 DOSES OF 200 MG EVERY MONTH  SUBCUTANEOUS)
     Route: 058
     Dates: start: 20100301
  2. PENTASA [Concomitant]
  3. ZOLOFT [Suspect]

REACTIONS (2)
  - BACK PAIN [None]
  - CROHN'S DISEASE [None]
